FAERS Safety Report 24258693 (Version 1)
Quarter: 2024Q3

REPORT INFORMATION
  Report Type: Report from Study
  Country: US (occurrence: US)
  Receive Date: 20240828
  Receipt Date: 20240828
  Transmission Date: 20241016
  Serious: Yes (Other)
  Sender: ABBVIE
  Company Number: US-ABBVIE-5892136

PATIENT
  Sex: Male

DRUGS (1)
  1. SKYRIZI [Suspect]
     Active Substance: RISANKIZUMAB-RZAA
     Indication: Psoriasis
     Route: 058
     Dates: start: 20230314

REACTIONS (5)
  - Gastric bypass [Unknown]
  - Ulcer [Recovering/Resolving]
  - Alopecia [Recovering/Resolving]
  - Nephrolithiasis [Recovering/Resolving]
  - Protein total decreased [Recovering/Resolving]
